FAERS Safety Report 19883444 (Version 1)
Quarter: 2021Q3

REPORT INFORMATION
  Report Type: Spontaneous
  Country: US (occurrence: US)
  Receive Date: 20210926
  Receipt Date: 20210926
  Transmission Date: 20211014
  Serious: No
  Sender: FDA-Public Use
  Company Number: US-ORGANON-O2109USA000244

PATIENT
  Age: 82 Year
  Sex: Male

DRUGS (1)
  1. ASMANEX [Suspect]
     Active Substance: MOMETASONE FUROATE
     Dosage: 1 PUFF DAILY
     Route: 048
     Dates: start: 20210827

REACTIONS (5)
  - Device malfunction [Unknown]
  - Poor quality device used [Unknown]
  - Device material issue [Unknown]
  - No adverse event [Unknown]
  - Product leakage [Unknown]

NARRATIVE: CASE EVENT DATE: 20210827
